FAERS Safety Report 13450472 (Version 1)
Quarter: 2017Q2

REPORT INFORMATION
  Report Type: Spontaneous
  Country: US (occurrence: US)
  Receive Date: 20170418
  Receipt Date: 20170418
  Transmission Date: 20170830
  Serious: No
  Sender: FDA-Public Use
  Company Number: US-009507513-1704USA003330

PATIENT
  Sex: Female

DRUGS (2)
  1. ZEPATIER [Suspect]
     Active Substance: ELBASVIR\GRAZOPREVIR
     Indication: HEPATITIS C
     Dosage: 1 TABLET EVERY DAY (TOTAL DAILY DOSE: 50/100 MG)
     Route: 048
     Dates: start: 201703
  2. OMEGA-3 MARINE TRIGLYCERIDES [Concomitant]
     Active Substance: FISH OIL

REACTIONS (6)
  - Renal pain [Unknown]
  - Breast swelling [Unknown]
  - Headache [Unknown]
  - Ear swelling [Unknown]
  - Pain [Unknown]
  - Fatigue [Unknown]
